FAERS Safety Report 15298575 (Version 1)
Quarter: 2018Q3

REPORT INFORMATION
  Report Type: Spontaneous
  Country: FR (occurrence: FR)
  Receive Date: 20180820
  Receipt Date: 20180820
  Transmission Date: 20181010
  Serious: Yes (Life-Threatening)
  Sender: FDA-Public Use
  Company Number: FR-MUNDIPHARMA DS AND PHARMACOVIGILANCE-GBR-2016-0041674

PATIENT
  Age: 60 Year
  Sex: Male

DRUGS (13)
  1. RAMIPRIL. [Concomitant]
     Active Substance: RAMIPRIL
  2. NEFOPAM HYDROCHLORIDE [Suspect]
     Active Substance: NEFOPAM HYDROCHLORIDE
     Indication: PROCEDURAL PAIN
     Dosage: 120 MG, DAILY
     Route: 042
     Dates: start: 20160511, end: 20160513
  3. TOPALGIC                           /00599202/ [Suspect]
     Active Substance: TRAMADOL HYDROCHLORIDE
     Indication: PAIN
     Dosage: 50 ML, Q4H
     Route: 042
     Dates: start: 20160512, end: 20160513
  4. ONDANSETRON [Concomitant]
     Active Substance: ONDANSETRON
     Dosage: 4 MG, UNK
     Dates: start: 20160911, end: 20160913
  5. EZETROL [Concomitant]
     Active Substance: EZETIMIBE
  6. NEBIVOLOL. [Concomitant]
     Active Substance: NEBIVOLOL
  7. LOVENOX [Concomitant]
     Active Substance: ENOXAPARIN SODIUM
  8. KARDEGIC [Concomitant]
     Active Substance: ASPIRIN DL-LYSINE
  9. PARACETAMOL [Concomitant]
     Active Substance: ACETAMINOPHEN
     Dosage: 1 G, Q6H
     Dates: start: 20160911, end: 20160913
  10. HYDROXYZINE HYDROCHLORIDE. [Concomitant]
     Active Substance: HYDROXYZINE HYDROCHLORIDE
  11. OXYNORM [Suspect]
     Active Substance: OXYCODONE HYDROCHLORIDE
     Indication: PAIN
     Dosage: 30 MG, DAILY
     Route: 042
     Dates: start: 20160511, end: 20160515
  12. IKOREL [Concomitant]
     Active Substance: NICORANDIL
  13. PRAVASTATINE [Concomitant]
     Active Substance: PRAVASTATIN

REACTIONS (2)
  - Acute respiratory distress syndrome [Recovered/Resolved]
  - Generalised tonic-clonic seizure [Recovered/Resolved]

NARRATIVE: CASE EVENT DATE: 20160515
